FAERS Safety Report 6003204-X (Version None)
Quarter: 2008Q4

REPORT INFORMATION
  Report Type: 
  Country: None (occurrence: None)
  Receive Date: 20081212
  Receipt Date: 20081127
  Transmission Date: 20090506
  Serious: Yes (Hospitalization)
  Sender: FDA-Public Use
  Company Number: FR-1167992

PATIENT
  Age: 81 Year
  Sex: Female

DRUGS (13)
  1. TOBREX [Suspect]
     Dosage: OPHTHALMIC
     Route: 047
     Dates: start: 20080613, end: 20080618
  2. AUGMENTIN '125' [Concomitant]
  3. CALCIPARINE [Concomitant]
  4. POTASSIUM CHLORIDE [Concomitant]
  5. ZOCOR [Concomitant]
  6. LERCANIDIPINE [Concomitant]
  7. ACETAMINOPHEN W/ PROPOXYPHENE HCL [Concomitant]
  8. ENDOTELON (ENDOTELON) [Concomitant]
  9. TRANDATE [Concomitant]
  10. HYZAAR (HYDROCHLOROTHIAZIDE W/LOSARTAN) [Concomitant]
  11. LASIX [Concomitant]
  12. BRICANYL [Concomitant]
  13. ATROVENT [Concomitant]

REACTIONS (3)
  - ACUTE GENERALISED EXANTHEMATOUS PUSTULOSIS [None]
  - THROMBOCYTHAEMIA [None]
  - TOXIC SKIN ERUPTION [None]
